FAERS Safety Report 6186571-6 (Version None)
Quarter: 2009Q2

REPORT INFORMATION
  Report Type: 
  Country: None (occurrence: None)
  Receive Date: 20090512
  Receipt Date: 20090505
  Transmission Date: 20091009
  Serious: Yes (Life-Threatening, Hospitalization)
  Sender: FDA-Public Use
  Company Number: DE-WYE-G03621909

PATIENT
  Age: 56 Year
  Sex: Female
  Weight: 80 kg

DRUGS (4)
  1. TREVILOR RETARD [Suspect]
     Dosage: UNKNOWN AMOUNT, QUESTIONABLE
     Route: 048
     Dates: start: 20090504, end: 20090504
  2. QUILONUM - SLOW RELEASE [Suspect]
     Dosage: UNKNOWN AMOUNT, QUESTIONABLE
     Route: 048
     Dates: start: 20090504, end: 20090504
  3. ZYPREXA [Suspect]
     Dosage: UNKNOWN AMOUNT, QUESTIONABLE
     Route: 048
     Dates: start: 20090504, end: 20090504
  4. ALCOHOL [Suspect]
     Dosage: UNKNOWN AMOUNT
     Route: 048
     Dates: start: 20090504, end: 20090504

REACTIONS (4)
  - ASPHYXIA [None]
  - FEELING DRUNK [None]
  - SOMNOLENCE [None]
  - SUICIDE ATTEMPT [None]
